FAERS Safety Report 4523305-2 (Version None)
Quarter: 2004Q4

REPORT INFORMATION
  Report Type: 
  Country: None (occurrence: None)
  Receive Date: 20041209
  Receipt Date: 20041209
  Transmission Date: 20050328
  Serious: No
  Sender: FDA-Public Use
  Company Number: None

PATIENT
  Age: 40 Year
  Sex: Female
  Weight: 81 kg

DRUGS (5)
  1. VORICONAZOLE [Suspect]
     Indication: FEBRILE NEUTROPENIA
     Dosage: 490 MG IV 12 HRS
     Route: 042
     Dates: start: 20041106, end: 20041107
  2. VORICOAZOLE [Suspect]
     Dosage: 327 MG IV 12 HRS
     Route: 042
     Dates: start: 20041107, end: 20041111
  3. DAPTOMYCIN [Concomitant]
  4. LANSOPRAZOLE [Concomitant]
  5. MEROPENEM [Concomitant]

REACTIONS (2)
  - NIGHTMARE [None]
  - VISUAL DISTURBANCE [None]
